FAERS Safety Report 5859944-6 (Version None)
Quarter: 2008Q3

REPORT INFORMATION
  Report Type: 
  Country: None (occurrence: None)
  Receive Date: 20080818
  Receipt Date: 20080425
  Transmission Date: 20090109
  Serious: No
  Sender: FDA-Public Use
  Company Number: TAP2008A00590

PATIENT
  Age: 6 Decade
  Sex: Male

DRUGS (3)
  1. ROZEREM [Suspect]
     Indication: DRUG USE FOR UNKNOWN INDICATION
     Dosage: QHS, PER ORAL
     Route: 048
     Dates: start: 20080101, end: 20080101
  2. UNKNOWN MEDICATION (ANTIHYPERTENSIVES0 [Concomitant]
  3. UNKNOWN MEDICATION (ANTI-DIABETICS) [Concomitant]

REACTIONS (1)
  - SKIN DISCOLOURATION [None]
